FAERS Safety Report 14603878 (Version 1)
Quarter: 2018Q1

REPORT INFORMATION
  Report Type: Spontaneous
  Country: US (occurrence: US)
  Receive Date: 20180305
  Receipt Date: 20180305
  Transmission Date: 20180509
  Serious: Yes (Hospitalization)
  Sender: FDA-Public Use
  Company Number: None

PATIENT
  Age: 75 Year
  Sex: Male
  Weight: 115 kg

DRUGS (2)
  1. NAPROXEN. [Suspect]
     Active Substance: NAPROXEN
     Indication: PAIN
     Route: 048
  2. LISINOPRIL HCTZ 20/25- 2 TABLETS DAILY [Concomitant]

REACTIONS (5)
  - Diarrhoea [None]
  - Haematemesis [None]
  - Faeces discoloured [None]
  - Epigastric discomfort [None]
  - Alcohol use [None]

NARRATIVE: CASE EVENT DATE: 20180222
